FAERS Safety Report 8118368-1 (Version None)
Quarter: 2012Q1

REPORT INFORMATION
  Report Type: 
  Country: None (occurrence: None)
  Receive Date: 20120201
  Receipt Date: 20120124
  Transmission Date: 20120608
  Serious: Yes (Disabling)
  Sender: FDA-Public Use
  Company Number: AUR-APL-2012-00623

PATIENT
  Age: 53 Year
  Sex: Male

DRUGS (1)
  1. BISOPROLOL FUMARATE [Suspect]
     Indication: HYPERTENSION
     Dosage: 1.25 MG, ORAL
     Route: 048
     Dates: start: 20111202, end: 20111209

REACTIONS (3)
  - RASH [None]
  - SKIN CHAPPED [None]
  - SKIN EXFOLIATION [None]
